FAERS Safety Report 5773009-3 (Version None)
Quarter: 2008Q2

REPORT INFORMATION
  Report Type: 
  Country: None (occurrence: None)
  Receive Date: 20080613
  Receipt Date: 20080603
  Transmission Date: 20081010
  Serious: Yes (Other)
  Sender: FDA-Public Use
  Company Number: US-PFIZER INC-2008048556

PATIENT
  Sex: Female
  Weight: 74.8 kg

DRUGS (3)
  1. CHANTIX [Suspect]
     Indication: SMOKING CESSATION THERAPY
     Route: 048
     Dates: start: 20080403, end: 20080601
  2. MEGESTROL ACETATE [Concomitant]
     Indication: WEIGHT DECREASED
     Route: 048
     Dates: start: 20070701, end: 20080527
  3. OTHER ANTI-ASTHMATICS, INHALANTS [Concomitant]
     Route: 055

REACTIONS (2)
  - FLUID RETENTION [None]
  - OEDEMA PERIPHERAL [None]
